FAERS Safety Report 15703760 (Version 1)
Quarter: 2018Q4

REPORT INFORMATION
  Report Type: Report from Study
  Country: CA (occurrence: CA)
  Receive Date: 20181210
  Receipt Date: 20181210
  Transmission Date: 20190205
  Serious: Yes (Other)
  Sender: FDA-Public Use
  Company Number: CA-GLAXOSMITHKLINE-CA2018GSK194257

PATIENT
  Sex: Female

DRUGS (1)
  1. SALBUTAMOL SULPHATE [Suspect]
     Active Substance: ALBUTEROL SULFATE
     Indication: PRODUCT USED FOR UNKNOWN INDICATION
     Dosage: UNK

REACTIONS (9)
  - Ill-defined disorder [Unknown]
  - Pulmonary mass [Unknown]
  - Hypoacusis [Recovered/Resolved]
  - Dyspnoea [Not Recovered/Not Resolved]
  - Eosinophilic granulomatosis with polyangiitis [Unknown]
  - Sinus polyp [Unknown]
  - Chronic sinusitis [Unknown]
  - Sinus disorder [Not Recovered/Not Resolved]
  - Nasopharyngitis [Unknown]
